FAERS Safety Report 6802698-7 (Version None)
Quarter: 2010Q2

REPORT INFORMATION
  Report Type: 
  Country: None (occurrence: None)
  Receive Date: 20100628
  Receipt Date: 20100618
  Transmission Date: 20101027
  Serious: Yes (Hospitalization)
  Sender: FDA-Public Use
  Company Number: DE-ASTRAZENECA-2010SE29027

PATIENT
  Age: 29436 Day
  Sex: Female
  Weight: 72 kg

DRUGS (4)
  1. FASLODEX [Suspect]
     Indication: BREAST CANCER METASTATIC
     Route: 030
     Dates: start: 20091126
  2. ENALAPRIL MALEATE [Concomitant]
     Indication: HYPERTENSION
     Route: 048
  3. BISO-LICH [Concomitant]
     Indication: HYPERTENSION
     Route: 048
  4. TORASEMIDE [Concomitant]
     Route: 048

REACTIONS (3)
  - ANAEMIA [None]
  - ARRHYTHMIA [None]
  - GENERAL PHYSICAL HEALTH DETERIORATION [None]
